FAERS Safety Report 24029391 (Version 1)
Quarter: 2024Q2

REPORT INFORMATION
  Report Type: Spontaneous
  Country: RO (occurrence: RO)
  Receive Date: 20240628
  Receipt Date: 20240628
  Transmission Date: 20240716
  Serious: Yes (Hospitalization, Other)
  Sender: FDA-Public Use
  Company Number: RO-PFIZER INC-PV202400083405

PATIENT

DRUGS (9)
  1. MYLOTARG [Suspect]
     Active Substance: GEMTUZUMAB OZOGAMICIN
     Indication: Acute myeloid leukaemia
     Dosage: 3 MG/M2 D1,4,7
     Dates: start: 20230405, end: 20230411
  2. MYLOTARG [Suspect]
     Active Substance: GEMTUZUMAB OZOGAMICIN
     Dosage: 3 MG/M2 D1
     Dates: start: 20230517, end: 20230517
  3. MYLOTARG [Suspect]
     Active Substance: GEMTUZUMAB OZOGAMICIN
     Dosage: 3 MG/M2 D1
     Dates: start: 20230630, end: 20230630
  4. DAUNORUBICIN [Suspect]
     Active Substance: DAUNORUBICIN
     Indication: Acute myeloid leukaemia
     Dosage: 60 MG/M2 D1-D3
     Dates: start: 20230405, end: 20230407
  5. DAUNORUBICIN [Suspect]
     Active Substance: DAUNORUBICIN
     Dosage: 60 MG/M2 D1
     Dates: start: 20230517, end: 20230517
  6. DAUNORUBICIN [Suspect]
     Active Substance: DAUNORUBICIN
     Dosage: 60 MG/M2 D1
     Dates: start: 20230630, end: 20230630
  7. CYTARABINE [Suspect]
     Active Substance: CYTARABINE
     Indication: Acute myeloid leukaemia
     Dosage: 200 MG/M2 D1-D7
     Dates: start: 20230405, end: 20230411
  8. CYTARABINE [Suspect]
     Active Substance: CYTARABINE
     Dosage: 1G/M2 D1-4
     Dates: start: 20230517, end: 20230520
  9. CYTARABINE [Suspect]
     Active Substance: CYTARABINE
     Dosage: 1G/M2 D1-4
     Dates: start: 20230630, end: 20230703

REACTIONS (5)
  - Pancytopenia [Unknown]
  - Agranulocytosis [Unknown]
  - Hypotension [Unknown]
  - Pyrexia [Unknown]
  - Congenital aplasia [Unknown]

NARRATIVE: CASE EVENT DATE: 20230405
